FAERS Safety Report 16103180 (Version 2)
Quarter: 2019Q2

REPORT INFORMATION
  Report Type: Report from Study
  Country: None (occurrence: CA)
  Receive Date: 20190322
  Receipt Date: 20190404
  Transmission Date: 20190711
  Serious: Yes (Hospitalization)
  Sender: FDA-Public Use
  Company Number: CA-ABBVIE-19K-028-2697681-00

PATIENT
  Age: 75 Year
  Sex: Male

DRUGS (1)
  1. HUMIRA [Suspect]
     Active Substance: ADALIMUMAB
     Indication: RHEUMATOID ARTHRITIS
     Route: 058
     Dates: start: 20190211, end: 20190302

REACTIONS (13)
  - Feeling of body temperature change [Unknown]
  - Cyanosis [Unknown]
  - Malaise [Unknown]
  - Malaise [Recovered/Resolved]
  - Decreased appetite [Not Recovered/Not Resolved]
  - Peripheral swelling [Recovering/Resolving]
  - Pyrexia [Unknown]
  - Somnolence [Unknown]
  - Pain [Recovering/Resolving]
  - Respiration abnormal [Unknown]
  - Tremor [Unknown]
  - Joint swelling [Recovering/Resolving]
  - Dyspnoea [Unknown]

NARRATIVE: CASE EVENT DATE: 201902
